FAERS Safety Report 21395734 (Version 1)
Quarter: 2022Q3

REPORT INFORMATION
  Report Type: Spontaneous
  Country: US (occurrence: US)
  Receive Date: 20220930
  Receipt Date: 20220930
  Transmission Date: 20221027
  Serious: Yes (Other)
  Sender: FDA-Public Use
  Company Number: US-009507513-2209USA007379

PATIENT
  Age: 81 Year
  Sex: Male

DRUGS (8)
  1. PRIMAXIN IV [Suspect]
     Active Substance: CILASTATIN SODIUM\IMIPENEM
     Indication: Disseminated mycobacterium avium complex infection
     Dosage: 1 GRAM, TWICE DAILY
     Route: 042
  2. PRIMAXIN IV [Suspect]
     Active Substance: CILASTATIN SODIUM\IMIPENEM
     Indication: Atypical mycobacterial infection
  3. AZITHROMYCIN [Concomitant]
     Active Substance: AZITHROMYCIN
     Indication: Disseminated mycobacterium avium complex infection
     Dosage: 500 MILLIGRAM, DAILY
     Route: 042
  4. AZITHROMYCIN [Concomitant]
     Active Substance: AZITHROMYCIN
     Indication: Atypical mycobacterial infection
  5. TIGECYCLINE [Concomitant]
     Active Substance: TIGECYCLINE
     Indication: Atypical mycobacterial infection
     Dosage: 50 MILLIGRAM, DAILY
     Route: 042
  6. TIGECYCLINE [Concomitant]
     Active Substance: TIGECYCLINE
     Indication: Disseminated mycobacterium avium complex infection
  7. AMIKACIN [Concomitant]
     Active Substance: AMIKACIN
     Indication: Disseminated mycobacterium avium complex infection
     Dosage: 15 MILLIGRAM/KILOGRAM, 3 TIMES WEEKLY
  8. AMIKACIN [Concomitant]
     Active Substance: AMIKACIN
     Indication: Disseminated mycobacterium avium complex infection

REACTIONS (2)
  - Thrombocytopenia [Unknown]
  - Product use in unapproved indication [Unknown]
